FAERS Safety Report 26049528 (Version 1)
Quarter: 2025Q4

REPORT INFORMATION
  Report Type: Report from Study
  Country: EU (occurrence: EU)
  Receive Date: 20251115
  Receipt Date: 20251115
  Transmission Date: 20260117
  Serious: Yes (Hospitalization)
  Sender: ABBVIE
  Company Number: EU-ABBVIE-6544659

PATIENT
  Age: 62 Year

DRUGS (1)
  1. UPADACITINIB [Suspect]
     Active Substance: UPADACITINIB
     Indication: Crohn^s disease
     Route: 048
     Dates: start: 202411

REACTIONS (6)
  - Embolism venous [Unknown]
  - Pulmonary embolism [Unknown]
  - Myalgia [Unknown]
  - Arthralgia [Unknown]
  - Immobile [Unknown]
  - Movement disorder [Unknown]
